FAERS Safety Report 4348361-6 (Version None)
Quarter: 2004Q2

REPORT INFORMATION
  Report Type: 
  Country: None (occurrence: None)
  Receive Date: 20040427
  Receipt Date: 20040416
  Transmission Date: 20050107
  Serious: Yes (Other)
  Sender: FDA-Public Use
  Company Number: PHBS2004CH05247

PATIENT
  Sex: Female

DRUGS (1)
  1. CYCLOSPORINE [Suspect]
     Indication: LIVER TRANSPLANT
     Dosage: 200 MG/D
     Route: 065
     Dates: start: 20020101

REACTIONS (8)
  - ASEPTIC NECROSIS BONE [None]
  - HYPERKERATOSIS [None]
  - HYPERTENSION [None]
  - IRON DEFICIENCY ANAEMIA [None]
  - MENOMETRORRHAGIA [None]
  - ONYCHORRHEXIS [None]
  - SKIN DESQUAMATION [None]
  - SKIN FISSURES [None]
